FAERS Safety Report 7864786-6 (Version None)
Quarter: 2011Q4

REPORT INFORMATION
  Report Type: 
  Country: None (occurrence: None)
  Receive Date: 20111028
  Receipt Date: 20101112
  Transmission Date: 20120403
  Serious: No
  Sender: FDA-Public Use
  Company Number: US-GLAXOSMITHKLINE-A0746113A

PATIENT
  Age: 52 Year
  Sex: Male

DRUGS (15)
  1. ADVAIR DISKUS 100/50 [Suspect]
     Indication: CHRONIC OBSTRUCTIVE PULMONARY DISEASE
     Route: 055
     Dates: start: 20060301
  2. CITALOPRAM HYDROBROMIDE [Concomitant]
  3. ADVAIR DISKUS 100/50 [Suspect]
     Indication: EMPHYSEMA
     Route: 055
     Dates: start: 20090101
  4. FUROSEMIDE [Concomitant]
  5. COLCHICINE [Concomitant]
  6. WARFARIN SODIUM [Concomitant]
  7. MORPHINE [Concomitant]
  8. CELEXA [Concomitant]
  9. METOPROLOL TARTRATE [Concomitant]
  10. RANITIDINE [Concomitant]
  11. COMBIVENT [Concomitant]
  12. LISINOPRIL [Concomitant]
  13. PERCOCET [Concomitant]
  14. AMBIEN [Concomitant]
  15. ALPRAZOLAM [Concomitant]

REACTIONS (9)
  - ENAMEL ANOMALY [None]
  - TOOTH EXTRACTION [None]
  - TOOTH LOSS [None]
  - TEETH BRITTLE [None]
  - PRODUCT QUALITY ISSUE [None]
  - TOOTH DISORDER [None]
  - PAIN IN JAW [None]
  - TOOTH INJURY [None]
  - HEADACHE [None]
